FAERS Safety Report 4950297-4 (Version None)
Quarter: 2006Q1

REPORT INFORMATION
  Report Type: 
  Country: None (occurrence: None)
  Receive Date: 20060315
  Receipt Date: 20060226
  Transmission Date: 20060701
  Serious: Yes (Other)
  Sender: FDA-Public Use
  Company Number: GB200603000008

PATIENT
  Age: 44 Year
  Sex: Female

DRUGS (3)
  1. OLANZAPINE [Suspect]
     Indication: PERSONALITY DISORDER
     Dosage: 10 MG
     Dates: start: 20060106
  2. FLUOXETINE (FLUOXETINE HYDROCHLORIDE MANUFACTURER) [Concomitant]
  3. VENLAFAXINE (VENALFAXINE) [Concomitant]

REACTIONS (2)
  - AGGRESSION [None]
  - SUICIDAL IDEATION [None]
